FAERS Safety Report 10904375 (Version 1)
Quarter: 2015Q1

REPORT INFORMATION
  Report Type: Report from Study
  Country: FR (occurrence: FR)
  Receive Date: 20150311
  Receipt Date: 20150311
  Transmission Date: 20150721
  Serious: Yes (Death, Hospitalization)
  Sender: FDA-Public Use
  Company Number: FR-ROCHE-1164751

PATIENT
  Age: 65 Year
  Sex: Female

DRUGS (8)
  1. CORTANCYL [Concomitant]
     Active Substance: PREDNISONE
     Route: 065
  2. PARACETAMOL [Concomitant]
     Active Substance: ACETAMINOPHEN
  3. RITUXIMAB [Suspect]
     Active Substance: RITUXIMAB
     Indication: RHEUMATOID ARTHRITIS
     Dosage: DAY 1
     Route: 041
     Dates: start: 20090403
  4. RITUXIMAB [Suspect]
     Active Substance: RITUXIMAB
     Dosage: DAY15
     Route: 042
     Dates: start: 20110113
  5. METHYLPREDNISOLONE. [Concomitant]
     Active Substance: METHYLPREDNISOLONE
     Route: 065
  6. CORTANCYL [Concomitant]
     Active Substance: PREDNISONE
     Route: 065
  7. RITUXIMAB [Suspect]
     Active Substance: RITUXIMAB
     Dosage: DAY 15
     Route: 042
     Dates: start: 20090417
  8. RITUXIMAB [Suspect]
     Active Substance: RITUXIMAB
     Dosage: DAY 1
     Route: 042
     Dates: start: 20101231

REACTIONS (8)
  - Bronchopneumonia [Recovered/Resolved]
  - Ill-defined disorder [Recovered/Resolved]
  - Pollakiuria [Not Recovered/Not Resolved]
  - Vasculitis [Recovered/Resolved]
  - Infusion related reaction [Recovered/Resolved]
  - Respiratory failure [Fatal]
  - Bronchitis [Fatal]
  - Upper limb fracture [Unknown]

NARRATIVE: CASE EVENT DATE: 20090403
